FAERS Safety Report 5676151-0 (Version None)
Quarter: 2008Q1

REPORT INFORMATION
  Report Type: 
  Country: None (occurrence: None)
  Receive Date: 20080321
  Receipt Date: 20080314
  Transmission Date: 20080703
  Serious: No
  Sender: FDA-Public Use
  Company Number: US-BAXTER-2008BH002322

PATIENT
  Age: 66 Year
  Sex: Female
  Weight: 73 kg

DRUGS (8)
  1. HEPARIN SODIUM [Suspect]
     Indication: CYSTITIS INTERSTITIAL
     Route: 058
     Dates: start: 20071101, end: 20080101
  2. DIGOXIN [Concomitant]
     Indication: PALPITATIONS
     Route: 048
  3. METOPROLOL TARTRATE [Concomitant]
     Indication: PALPITATIONS
     Route: 048
  4. THYROID TAB [Concomitant]
     Indication: HYPOTHYROIDISM
     Route: 048
  5. OGEN [Concomitant]
     Indication: HORMONE REPLACEMENT THERAPY
     Route: 048
  6. TRANXENE [Concomitant]
     Indication: DRUG USE FOR UNKNOWN INDICATION
     Route: 048
  7. AMBIEN CR [Concomitant]
     Indication: DRUG USE FOR UNKNOWN INDICATION
     Route: 048
  8. NASONEX SPRAY [Concomitant]
     Indication: RHINITIS ALLERGIC
     Dosage: DOSE UNIT:UNKNOWN
     Route: 055

REACTIONS (1)
  - INJECTION SITE HAEMORRHAGE [None]
